FAERS Safety Report 9092750 (Version 1)
Quarter: 2013Q1

REPORT INFORMATION
  Report Type: Spontaneous
  Country: US (occurrence: US)
  Receive Date: 20130201
  Receipt Date: 20130201
  Transmission Date: 20140127
  Serious: Yes (Death)
  Sender: FDA-Public Use
  Company Number: US-AMGEN-USASP2013005973

PATIENT
  Age: 86 Year
  Sex: Female

DRUGS (4)
  1. PROLIA [Suspect]
     Indication: OSTEOPOROSIS POSTMENOPAUSAL
     Dosage: UNK
     Dates: start: 20130104
  2. OXYGEN [Concomitant]
  3. ASPIRIN [Concomitant]
  4. CORTICOSTEROID NOS [Suspect]

REACTIONS (2)
  - Death [Fatal]
  - Haemoptysis [Fatal]
